FAERS Safety Report 5755796-3 (Version None)
Quarter: 2008Q2

REPORT INFORMATION
  Report Type: 
  Country: None (occurrence: None)
  Receive Date: 20080528
  Receipt Date: 20080513
  Transmission Date: 20081010
  Serious: Yes (Life-Threatening, Hospitalization)
  Sender: FDA-Public Use
  Company Number: 2008001138

PATIENT
  Age: 69 Year
  Sex: Male
  Weight: 75.4 kg

DRUGS (8)
  1. ERLOTINIB (ERLOTINIB) (TABLET) (ERLOTINIB) [Suspect]
     Indication: GLIOBLASTOMA MULTIFORME
     Dosage: (150 MILLICURIES, QD), ORAL
     Route: 048
     Dates: start: 20080314
  2. LOTREL [Concomitant]
  3. ARICEPT [Concomitant]
  4. ISOSORBIDE (ISOSORBIDE) [Concomitant]
  5. ASPIRIN [Concomitant]
  6. ATENOLOL [Concomitant]
  7. DEXAMETHASONE TAB [Concomitant]
  8. DEPAKOTE [Concomitant]

REACTIONS (4)
  - COLITIS [None]
  - CONVULSION [None]
  - DEEP VEIN THROMBOSIS [None]
  - THROMBOCYTOPENIA [None]
